FAERS Safety Report 13923872 (Version 3)
Quarter: 2018Q1

REPORT INFORMATION
  Report Type: Spontaneous
  Country: US (occurrence: US)
  Receive Date: 20170831
  Receipt Date: 20180123
  Transmission Date: 20180508
  Serious: Yes (Hospitalization)
  Sender: FDA-Public Use
  Company Number: US-PFIZER INC-2017376063

PATIENT
  Age: 60 Year
  Sex: Female
  Weight: 95.24 kg

DRUGS (19)
  1. LYRICA [Suspect]
     Active Substance: PREGABALIN
     Indication: PAIN IN EXTREMITY
  2. PLAQUENIL [Concomitant]
     Active Substance: HYDROXYCHLOROQUINE SULFATE
     Dosage: UNK
  3. GLIMEPIRIDE. [Concomitant]
     Active Substance: GLIMEPIRIDE
     Dosage: UNK
  4. LISINOPRIL. [Concomitant]
     Active Substance: LISINOPRIL
     Dosage: UNK
  5. VITAMIN D [Concomitant]
     Active Substance: CHOLECALCIFEROL
     Dosage: UNK
  6. LYRICA [Suspect]
     Active Substance: PREGABALIN
     Indication: SPINAL OPERATION
     Dosage: 150 MG, THRICE DAILY
     Dates: start: 200605
  7. TUMS [Concomitant]
     Active Substance: CALCIUM CARBONATE
     Indication: MINERAL SUPPLEMENTATION
     Dosage: 2 DF, UNK
  8. LYRICA [Suspect]
     Active Substance: PREGABALIN
     Indication: INTERVERTEBRAL DISC PROTRUSION
     Dosage: 150 MG, THRICE DAILY
     Route: 048
     Dates: start: 20170627
  9. LYRICA [Suspect]
     Active Substance: PREGABALIN
     Indication: GAIT INABILITY
  10. XANAX [Concomitant]
     Active Substance: ALPRAZOLAM
     Dosage: UNK
  11. LORTAB [Concomitant]
     Active Substance: ACETAMINOPHEN\HYDROCODONE BITARTRATE
     Dosage: UNK
  12. TUMS [Concomitant]
     Active Substance: CALCIUM CARBONATE
     Dosage: 3 DF, UNK
  13. LYRICA [Suspect]
     Active Substance: PREGABALIN
     Indication: HYPOAESTHESIA
  14. VOLTAREN [Concomitant]
     Active Substance: DICLOFENAC SODIUM
     Dosage: UNK
  15. FLEXERIL [Concomitant]
     Active Substance: CYCLOBENZAPRINE HYDROCHLORIDE
     Dosage: UNK
  16. PROVENTIL [Concomitant]
     Active Substance: ALBUTEROL
     Dosage: UNK
  17. AMLODIPINE [Concomitant]
     Active Substance: AMLODIPINE BESYLATE
     Dosage: UNK
  18. COQ10 [Concomitant]
     Active Substance: UBIDECARENONE
     Dosage: UNK
  19. NORVASC [Concomitant]
     Active Substance: AMLODIPINE BESYLATE
     Dosage: UNK

REACTIONS (6)
  - Malaise [Unknown]
  - Nosocomial infection [Unknown]
  - Abscess [Recovering/Resolving]
  - Post-traumatic stress disorder [Not Recovered/Not Resolved]
  - Renal failure [Unknown]
  - Respiratory failure [Unknown]

NARRATIVE: CASE EVENT DATE: 2017
